FAERS Safety Report 7024952-9 (Version None)
Quarter: 2010Q4

REPORT INFORMATION
  Report Type: 
  Country: None (occurrence: None)
  Receive Date: 20101001
  Receipt Date: 20100929
  Transmission Date: 20110411
  Serious: Yes (Other)
  Sender: FDA-Public Use
  Company Number: DE-BRISTOL-MYERS SQUIBB COMPANY-15305105

PATIENT
  Age: 37 Year
  Sex: Female

DRUGS (1)
  1. ESMOLOL HCL [Suspect]
     Dosage: 1 DF = 25MICROG/KG/MIN

REACTIONS (1)
  - CARDIAC OUTPUT DECREASED [None]
